FAERS Safety Report 15721771 (Version 3)
Quarter: 2019Q2

REPORT INFORMATION
  Report Type: Spontaneous
  Country: US (occurrence: US)
  Receive Date: 20181214
  Receipt Date: 20190604
  Transmission Date: 20190711
  Serious: Yes (Other)
  Sender: FDA-Public Use
  Company Number: US-PFIZER INC-2018513238

PATIENT
  Age: 65 Year
  Sex: Male
  Weight: 108.84 kg

DRUGS (3)
  1. LYRICA [Suspect]
     Active Substance: PREGABALIN
     Indication: ARTHRALGIA
     Dosage: 100 MG, 3X/DAY
     Route: 048
     Dates: start: 20190521
  2. LYRICA [Suspect]
     Active Substance: PREGABALIN
     Indication: DIABETES MELLITUS
     Dosage: 100 MG, 3X/DAY (TAKE 1 CAPSULE BY MOUTH 3 TIMES DAILY)
     Route: 048
  3. LYRICA [Suspect]
     Active Substance: PREGABALIN
     Indication: NEUROPATHY PERIPHERAL
     Dosage: UNK UNK, 3X/DAY
     Route: 048
     Dates: start: 20190416

REACTIONS (3)
  - Arthralgia [Unknown]
  - Drug dependence [Unknown]
  - Nervousness [Unknown]
